FAERS Safety Report 10651977 (Version 1)
Quarter: 2014Q4

REPORT INFORMATION
  Report Type: Spontaneous
  Country: FI (occurrence: FI)
  Receive Date: 20141215
  Receipt Date: 20141215
  Transmission Date: 20150529
  Serious: Yes (Other)
  Sender: FDA-Public Use
  Company Number: FI-PFIZER INC-2014334995

PATIENT
  Age: 54 Year
  Sex: Male

DRUGS (8)
  1. PANADOL FORTE [Concomitant]
     Indication: BACK PAIN
     Dosage: 1X 1-3
  2. NIFANGIN [Concomitant]
     Indication: HYPERTENSION
     Dosage: 10 MG, 2X/DAY
  3. ATENOLOL. [Concomitant]
     Active Substance: ATENOLOL
     Indication: HYPERTENSION
     Dosage: 50 MG, 1X/DAY
  4. NEBIDO [Concomitant]
     Active Substance: TESTOSTERONE UNDECANOATE
     Indication: HORMONE REPLACEMENT THERAPY
     Dosage: 1000 MG/4 ML, SEPARATE INSTRUCTION
  5. LYRICA [Suspect]
     Active Substance: PREGABALIN
     Indication: NEURALGIA
     Dosage: 75 MG, 1X/DAY
     Route: 048
     Dates: start: 20141117, end: 20141119
  6. LYRICA [Interacting]
     Active Substance: PREGABALIN
     Dosage: 75 MG, 2X/DAY
     Route: 048
     Dates: start: 20141120, end: 20141121
  7. DOLAN [Concomitant]
     Indication: PAIN
     Dosage: 35/450 MG, 1X1-3
  8. MELATONIN [Concomitant]
     Active Substance: MELATONIN
     Indication: INSOMNIA
     Dosage: 5 MG, 1X/DAY

REACTIONS (4)
  - Alcohol poisoning [Recovered/Resolved]
  - Confusional state [Recovered/Resolved]
  - Alcohol interaction [Recovered/Resolved]
  - Aggression [Recovered/Resolved]

NARRATIVE: CASE EVENT DATE: 20141120
